FAERS Safety Report 9457359 (Version 1)
Quarter: 2013Q3

REPORT INFORMATION
  Report Type: Spontaneous
  Country: US (occurrence: US)
  Receive Date: 20130814
  Receipt Date: 20130814
  Transmission Date: 20140515
  Serious: Yes (Other)
  Sender: FDA-Public Use
  Company Number: PHEH2013US017101

PATIENT
  Sex: Female

DRUGS (1)
  1. GLEEVEC [Suspect]
     Indication: LEUKAEMIA

REACTIONS (6)
  - Breast cancer [Unknown]
  - Second primary malignancy [Unknown]
  - Vaginal haemorrhage [Unknown]
  - Mouth haemorrhage [Unknown]
  - Haemoglobin abnormal [Unknown]
  - Renal disorder [Unknown]
